FAERS Safety Report 9058485 (Version 2)
Quarter: 2013Q1

REPORT INFORMATION
  Report Type: Spontaneous
  Country: ES (occurrence: ES)
  Receive Date: 20130211
  Receipt Date: 20130226
  Transmission Date: 20140127
  Serious: Yes (Other)
  Sender: FDA-Public Use
  Company Number: ES-ELI_LILLY_AND_COMPANY-ES201302000806

PATIENT
  Age: 44 Year
  Sex: Male

DRUGS (6)
  1. ZYPREXA [Suspect]
     Indication: SCHIZOPHRENIA, PARANOID TYPE
     Dosage: 50 MG, QD
     Dates: start: 20120802, end: 20120802
  2. ZYPREXA [Suspect]
     Dosage: 20 MG, QD
     Dates: start: 2007, end: 20120801
  3. DIAZEPAM [Concomitant]
     Indication: INSOMNIA
     Dosage: UNK
     Dates: start: 2007
  4. DAFIRO [Concomitant]
     Indication: HYPERTENSION
     Dosage: 20 MG, UNK
     Route: 048
     Dates: start: 2009
  5. ETUMINA [Concomitant]
     Indication: SCHIZOPHRENIA, PARANOID TYPE
     Dosage: 40 MG, QD
     Route: 048
     Dates: start: 201209
  6. STILNOX [Concomitant]
     Indication: INSOMNIA
     Dosage: 10 MG, BID
     Route: 048
     Dates: start: 2007

REACTIONS (3)
  - Inappropriate antidiuretic hormone secretion [Recovered/Resolved]
  - Hypotension [Recovered/Resolved]
  - Intentional overdose [Recovered/Resolved]
